FAERS Safety Report 23469819 (Version 2)
Quarter: 2024Q3

REPORT INFORMATION
  Report Type: Spontaneous
  Country: BR (occurrence: BR)
  Receive Date: 20240202
  Receipt Date: 20240705
  Transmission Date: 20241017
  Serious: Yes (Hospitalization)
  Sender: BRISTOL MYERS SQUIBB
  Company Number: BR-BRISTOL-MYERS SQUIBB COMPANY-2024-013388

PATIENT
  Age: 68 Year
  Sex: Male
  Weight: 84 kg

DRUGS (6)
  1. SPRYCEL [Suspect]
     Active Substance: DASATINIB
     Indication: Philadelphia positive acute lymphocytic leukaemia
     Dosage: DOSE : 140MG;     FREQ : DAILY?STRENGTH-100 MG
     Dates: start: 20230601, end: 202312
  2. SPRYCEL [Suspect]
     Active Substance: DASATINIB
     Dosage: DOSE : 140MG;     FREQ : DAILY?STRENGTH-100 MG
     Dates: start: 20230601, end: 202312
  3. SPRYCEL [Suspect]
     Active Substance: DASATINIB
     Dates: start: 202404
  4. CYCLOSPORINE [Concomitant]
     Active Substance: CYCLOSPORINE
     Indication: Product used for unknown indication
     Dosage: SANDIMMUN NEORAL 50 MG / SANDIMMUN NEORAL 100 MG      FREQ-DAILY
     Dates: start: 20240119
  5. ROSUVASTATIN [Concomitant]
     Active Substance: ROSUVASTATIN
     Indication: Blood cholesterol
  6. TAMSULOSIN HYDROCHLORIDE [Concomitant]
     Active Substance: TAMSULOSIN HYDROCHLORIDE
     Indication: Blood cholesterol

REACTIONS (4)
  - Bacterial infection [Unknown]
  - White blood cell disorder [Unknown]
  - Platelet disorder [Unknown]
  - Herpes zoster [Unknown]
